FAERS Safety Report 6322170-0 (Version None)
Quarter: 2009Q3

REPORT INFORMATION
  Report Type: 
  Country: None (occurrence: None)
  Receive Date: 20090821
  Receipt Date: 20090821
  Transmission Date: 20100115
  Serious: Yes (Life-Threatening, Hospitalization)
  Sender: FDA-Public Use
  Company Number: None

PATIENT
  Age: 34 Year
  Sex: Female
  Weight: 68 kg

DRUGS (1)
  1. HYDROMORPHONE HCL [Suspect]
     Indication: PAIN
     Dosage: 2 MG PRN IV
     Route: 042
     Dates: start: 20090818, end: 20090819

REACTIONS (7)
  - BACK PAIN [None]
  - CARDIAC ARREST [None]
  - CARDIO-RESPIRATORY ARREST [None]
  - CHEYNE-STOKES RESPIRATION [None]
  - HYPOVENTILATION [None]
  - SEDATION [None]
  - UNRESPONSIVE TO STIMULI [None]
